FAERS Safety Report 17238836 (Version 2)
Quarter: 2020Q1

REPORT INFORMATION
  Report Type: Spontaneous
  Country: US (occurrence: US)
  Receive Date: 20200106
  Receipt Date: 20200306
  Transmission Date: 20200409
  Serious: No
  Sender: FDA-Public Use
  Company Number: US-SA-2019SA360479

PATIENT
  Age: 46 Year
  Sex: Female

DRUGS (2)
  1. DUPIXENT [Suspect]
     Active Substance: DUPILUMAB
     Indication: DERMATITIS ATOPIC
     Dosage: 300 MG, QOW
     Route: 058
     Dates: start: 20190201
  2. DUPIXENT [Suspect]
     Active Substance: DUPILUMAB
     Indication: RHINITIS ALLERGIC

REACTIONS (6)
  - Erythema [Unknown]
  - Pruritus [Unknown]
  - Product use in unapproved indication [Unknown]
  - Injection site swelling [Unknown]
  - Dermatitis atopic [Unknown]
  - Injection site pain [Unknown]

NARRATIVE: CASE EVENT DATE: 20190201
